FAERS Safety Report 9721154 (Version 3)
Quarter: 2014Q1

REPORT INFORMATION
  Report Type: Report from Study
  Country: JP (occurrence: JP)
  Receive Date: 20131129
  Receipt Date: 20140128
  Transmission Date: 20141002
  Serious: Yes (Hospitalization)
  Sender: FDA-Public Use
  Company Number: JP-ABBVIE-13P-087-1048787-00

PATIENT
  Age: 64 Year
  Sex: Male

DRUGS (14)
  1. LIPACREON [Suspect]
     Indication: PANCREATIC INSUFFICIENCY
     Dosage: SACHET, DAILY DOSE: 1800MG, ONCE A DAY
     Route: 048
     Dates: start: 20120316
  2. DIGESTIVE ENZYME [Concomitant]
     Indication: PRODUCT USED FOR UNKNOWN INDICATION
     Route: 048
  3. RABEPRAZOLE SODIUM [Concomitant]
     Indication: PANCREATIC INSUFFICIENCY
     Route: 048
     Dates: start: 20101106
  4. RABEPRAZOLE SODIUM [Concomitant]
     Indication: ILL-DEFINED DISORDER
     Dosage: DAILY DOSE: 10 MILLIGRAM, CHANGED TO GENERIC PRODUCT (DATE UNKNOWN)
  5. CAMOSTAT MESILATE [Concomitant]
     Indication: PANCREATIC INSUFFICIENCY
     Route: 048
  6. ETIZOLAM [Concomitant]
     Indication: PRODUCT USED FOR UNKNOWN INDICATION
     Route: 048
  7. SHAKUYAKUKANZOTO [Concomitant]
     Indication: PRODUCT USED FOR UNKNOWN INDICATION
     Route: 048
  8. MOSAPRIDE CITRATE [Concomitant]
     Indication: PRODUCT USED FOR UNKNOWN INDICATION
     Route: 048
  9. RILMAZAFONE HYDROCHLORIDE [Concomitant]
     Indication: INSOMNIA
     Route: 048
  10. LOXOPROFEN SODIUM [Concomitant]
     Indication: PANCREATIC INSUFFICIENCY
     Route: 048
  11. TRAMADOL HYDROCHLORIDE [Concomitant]
     Indication: PANCREATIC INSUFFICIENCY
     Route: 048
  12. REBAMIPIDE [Concomitant]
     Indication: PRODUCT USED FOR UNKNOWN INDICATION
     Route: 048
  13. CANDESARTAN CILEXETIL [Concomitant]
     Indication: HYPERTENSION
     Route: 048
  14. AMLODIPINE BESILATE [Concomitant]
     Indication: HYPERTENSION
     Route: 048

REACTIONS (2)
  - Intervertebral disc protrusion [Recovering/Resolving]
  - Herpes zoster [Recovered/Resolved]
